FAERS Safety Report 14003193 (Version 2)
Quarter: 2017Q4

REPORT INFORMATION
  Report Type: Spontaneous
  Country: US (occurrence: US)
  Receive Date: 20170922
  Receipt Date: 20171214
  Transmission Date: 20180321
  Serious: Yes (Hospitalization)
  Sender: FDA-Public Use
  Company Number: US-B.I. PHARMACEUTICALS,INC./RIDGEFIELD-2017-BI-051140

PATIENT
  Age: 83 Year
  Sex: Female

DRUGS (2)
  1. TIKOSYN [Concomitant]
     Active Substance: DOFETILIDE
     Indication: PRODUCT USED FOR UNKNOWN INDICATION
     Route: 065
  2. PRADAXA [Suspect]
     Active Substance: DABIGATRAN ETEXILATE MESYLATE
     Indication: ATRIAL FIBRILLATION
     Route: 065
     Dates: start: 20120620

REACTIONS (3)
  - Diverticulum intestinal haemorrhagic [Unknown]
  - Haemorrhagic anaemia [Unknown]
  - Coagulopathy [Unknown]

NARRATIVE: CASE EVENT DATE: 20120711
